FAERS Safety Report 4324621-X (Version None)
Quarter: 2004Q1

REPORT INFORMATION
  Report Type: 
  Country: None (occurrence: None)
  Receive Date: 20040323
  Receipt Date: 20040309
  Transmission Date: 20041129
  Serious: Yes (Life-Threatening, Hospitalization)
  Sender: FDA-Public Use
  Company Number: 2003-BP-02609NB

PATIENT
  Age: 59 Year
  Sex: Male

DRUGS (3)
  1. MOBIC [Suspect]
     Indication: ARTHRITIS
     Dosage: 10 MG (NR); PO
     Route: 048
     Dates: start: 20030310, end: 20030316
  2. PATEL (CP) [Concomitant]
  3. GASPORT(TA) [Concomitant]

REACTIONS (1)
  - DUODENAL ULCER PERFORATION [None]
